FAERS Safety Report 8612022-5 (Version None)
Quarter: 2012Q3

REPORT INFORMATION
  Report Type: 
  Country: None (occurrence: None)
  Receive Date: 20120822
  Receipt Date: 20120820
  Transmission Date: 20120928
  Serious: Yes (Hospitalization)
  Sender: FDA-Public Use
  Company Number: GB-GLAXOSMITHKLINE-B0823881A

PATIENT
  Age: 70 Year
  Sex: Female

DRUGS (10)
  1. INDACATEROL [Suspect]
     Indication: CHRONIC OBSTRUCTIVE PULMONARY DISEASE
     Dosage: 300MCG PER DAY
     Route: 055
     Dates: start: 20120701, end: 20120807
  2. SIMVASTATIN [Concomitant]
  3. CITALOPRAM HYDROBROMIDE [Concomitant]
  4. SALMETEROL + FLUTICASONE [Suspect]
     Indication: CHRONIC OBSTRUCTIVE PULMONARY DISEASE
     Dosage: 2IUAX PER DAY
     Route: 055
     Dates: end: 20120807
  5. ASPIRIN [Concomitant]
  6. TIOTROPIUM BROMIDE [Concomitant]
  7. BISOPROLOL FUMARATE [Concomitant]
  8. ALBUTEROL SULATE [Concomitant]
  9. RAMIPRIL [Concomitant]
  10. LANSOPRAZOLE [Concomitant]

REACTIONS (2)
  - PULMONARY OEDEMA [None]
  - ATRIAL FIBRILLATION [None]
